FAERS Safety Report 5690890-7 (Version None)
Quarter: 2008Q2

REPORT INFORMATION
  Report Type: 
  Country: None (occurrence: None)
  Receive Date: 20080401
  Receipt Date: 20080325
  Transmission Date: 20081010
  Serious: Yes (Death, Other)
  Sender: FDA-Public Use
  Company Number: CA-AVENTIS-200812681GDDC

PATIENT
  Age: 69 Year
  Sex: Male
  Weight: 59.87 kg

DRUGS (12)
  1. DOCETAXEL [Suspect]
     Indication: PROSTATE CANCER
     Route: 042
     Dates: start: 20080207, end: 20080228
  2. MONOCLONAL ANTIBODIES [Suspect]
     Indication: PROSTATE CANCER
     Route: 042
     Dates: start: 20080207, end: 20080228
  3. DILAUDID [Concomitant]
     Route: 058
     Dates: end: 20080310
  4. FLOVENT [Concomitant]
     Route: 048
     Dates: end: 20080310
  5. SPIRIVA [Concomitant]
     Route: 048
     Dates: end: 20080310
  6. VENTOLIN [Concomitant]
     Route: 048
     Dates: end: 20080310
  7. MONTELUKAST SODIUM [Concomitant]
     Route: 048
     Dates: end: 20080310
  8. FOSAMAX [Concomitant]
     Route: 048
     Dates: end: 20080310
  9. CELEBREX [Concomitant]
     Route: 048
     Dates: start: 20080110, end: 20080310
  10. COLACE [Concomitant]
     Route: 048
     Dates: start: 20080107, end: 20080310
  11. SENOKOT                            /00142201/ [Concomitant]
     Route: 048
     Dates: start: 20080107, end: 20080310
  12. LOSEC                              /00661201/ [Concomitant]
     Dates: start: 20080110, end: 20080310

REACTIONS (3)
  - DIARRHOEA [None]
  - HYPOVOLAEMIC SHOCK [None]
  - VOMITING [None]
